FAERS Safety Report 13639847 (Version 1)
Quarter: 2017Q2

REPORT INFORMATION
  Report Type: Spontaneous
  Country: US (occurrence: US)
  Receive Date: 20170609
  Receipt Date: 20170609
  Transmission Date: 20170830
  Serious: No
  Sender: FDA-Public Use
  Company Number: US-ROCHE-1162820

PATIENT
  Age: 77 Year
  Sex: Female

DRUGS (4)
  1. VALIUM [Suspect]
     Active Substance: DIAZEPAM
     Indication: ANXIETY
     Route: 065
  2. CLONAZEPAM. [Suspect]
     Active Substance: CLONAZEPAM
     Indication: ANXIETY
     Route: 048
  3. REMERON [Concomitant]
     Active Substance: MIRTAZAPINE
  4. VALIUM [Suspect]
     Active Substance: DIAZEPAM
     Indication: MYALGIA

REACTIONS (6)
  - Bone pain [Recovered/Resolved]
  - Weight increased [Recovered/Resolved]
  - Pruritus [Not Recovered/Not Resolved]
  - Myalgia [Recovered/Resolved]
  - Balance disorder [Recovered/Resolved]
  - Dizziness [Recovered/Resolved]
